FAERS Safety Report 5866521-X (Version None)
Quarter: 2008Q3

REPORT INFORMATION
  Report Type: 
  Country: None (occurrence: None)
  Receive Date: 20080902
  Receipt Date: 20080902
  Transmission Date: 20090109
  Serious: Yes (Hospitalization)
  Sender: FDA-Public Use
  Company Number: PHEH1996US06621

PATIENT
  Sex: Male

DRUGS (5)
  1. SANDIMMUNE [Suspect]
     Route: 048
     Dates: start: 19960511
  2. IMURAN [Concomitant]
  3. AMBIEN [Concomitant]
  4. PRILOSEC [Concomitant]
  5. PRAVACHOL [Concomitant]

REACTIONS (6)
  - BURNING SENSATION [None]
  - CYTOMEGALOVIRUS INFECTION [None]
  - HEADACHE [None]
  - HYPOAESTHESIA [None]
  - PAIN [None]
  - PYREXIA [None]
